FAERS Safety Report 8321002-9 (Version None)
Quarter: 2012Q2

REPORT INFORMATION
  Report Type: 
  Country: None (occurrence: None)
  Receive Date: 20120430
  Receipt Date: 20120425
  Transmission Date: 20120825
  Serious: Yes (Life-Threatening, Hospitalization)
  Sender: FDA-Public Use
  Company Number: PHHY2011FR65656

PATIENT
  Sex: Female
  Weight: 57 kg

DRUGS (9)
  1. ZOCOR [Concomitant]
     Dates: end: 20110401
  2. SEVELAMER [Concomitant]
     Dates: start: 20110418, end: 20110907
  3. CINACALCET HYDROCHLORIDE [Concomitant]
     Dosage: 30 MG, DAILY
     Dates: start: 20110610, end: 20110718
  4. LASIX [Concomitant]
     Dates: end: 20110701
  5. VALSARTAN [Suspect]
     Indication: HYPERTENSION
     Dosage: 160 MG, QD
     Route: 048
     Dates: start: 20110418, end: 20110715
  6. OMEPRAZOLE [Concomitant]
  7. VENOFER [Suspect]
     Dosage: 200 MG, PER WEEK
     Dates: start: 20101210, end: 20110401
  8. EUPRESSYL [Concomitant]
     Dosage: 90 (UNITS UNSPECIFIED) TID
     Dates: start: 20110418, end: 20110715
  9. FOLIC ACID [Concomitant]
     Dates: start: 20110112, end: 20110907

REACTIONS (4)
  - HEPATIC FAILURE [None]
  - PANCREATITIS [None]
  - LIPASE INCREASED [None]
  - ASPARTATE AMINOTRANSFERASE INCREASED [None]
